FAERS Safety Report 4289586-8 (Version None)
Quarter: 2004Q1

REPORT INFORMATION
  Report Type: 
  Country: None (occurrence: None)
  Receive Date: 20040206
  Receipt Date: 20021207
  Transmission Date: 20041129
  Serious: Yes (Hospitalization)
  Sender: FDA-Public Use
  Company Number: KII-2002-0007036

PATIENT
  Age: 62 Year
  Sex: Male

DRUGS (7)
  1. MS CONTIN [Suspect]
     Indication: PAIN
     Dosage: 30 MG, ORAL
     Route: 048
     Dates: start: 20021207
  2. INSULIN [Concomitant]
  3. NEURONTIN [Concomitant]
  4. METFORMIN HCL [Concomitant]
  5. SYNTHROID [Concomitant]
  6. GLYBURIDE [Concomitant]
  7. AVANDIA [Concomitant]

REACTIONS (8)
  - BLOOD PRESSURE INCREASED [None]
  - BODY TEMPERATURE DECREASED [None]
  - CONFUSIONAL STATE [None]
  - DISORIENTATION [None]
  - DRUG TOXICITY [None]
  - MEDICATION ERROR [None]
  - PRURITUS [None]
  - SOMNOLENCE [None]
